FAERS Safety Report 20136608 (Version 1)
Quarter: 2021Q4

REPORT INFORMATION
  Report Type: Spontaneous
  Country: MY (occurrence: MY)
  Receive Date: 20211201
  Receipt Date: 20211201
  Transmission Date: 20220303
  Serious: Yes (Other)
  Sender: FDA-Public Use
  Company Number: MY-BAYER-2021A258043

PATIENT
  Age: 33 Year
  Sex: Male

DRUGS (1)
  1. LORATADINE\PSEUDOEPHEDRINE SULFATE [Suspect]
     Active Substance: LORATADINE\PSEUDOEPHEDRINE SULFATE
     Indication: Sinusitis
     Dosage: 1 DF, QD
     Route: 048
     Dates: start: 20211127

REACTIONS (1)
  - Premature ejaculation [Recovered/Resolved]

NARRATIVE: CASE EVENT DATE: 20211127
